FAERS Safety Report 6528489-2 (Version None)
Quarter: 2010Q1

REPORT INFORMATION
  Report Type: 
  Country: None (occurrence: None)
  Receive Date: 20100106
  Receipt Date: 20091230
  Transmission Date: 20100710
  Serious: Yes (Other)
  Sender: FDA-Public Use
  Company Number: US-PFIZER INC-2009252560

PATIENT
  Age: 54 Year
  Sex: Male
  Weight: 84.807 kg

DRUGS (1)
  1. CHANTIX [Suspect]
     Indication: SMOKING CESSATION THERAPY
     Dosage: 1 MG, 2X/DAY
     Dates: start: 20090506, end: 20090627

REACTIONS (4)
  - ANXIETY [None]
  - DEPRESSION [None]
  - MENTAL DISORDER [None]
  - SUICIDAL IDEATION [None]
